FAERS Safety Report 12720022 (Version 3)
Quarter: 2016Q3

REPORT INFORMATION
  Report Type: Report from Study
  Country: LB (occurrence: LB)
  Receive Date: 20160907
  Receipt Date: 20160927
  Transmission Date: 20161109
  Serious: Yes (Hospitalization)
  Sender: FDA-Public Use
  Company Number: PHHY2016LB121819

PATIENT
  Age: 60 Year
  Sex: Female

DRUGS (4)
  1. EXJADE [Suspect]
     Active Substance: DEFERASIROX
     Dosage: 2000 MG, QD
     Dates: start: 201608
  2. WARFARIN [Concomitant]
     Active Substance: WARFARIN
     Indication: THROMBOSIS
     Route: 065
  3. EXJADE [Suspect]
     Active Substance: DEFERASIROX
     Indication: THALASSAEMIA
     Dosage: 1500 MG, QD (PER DAY)
     Route: 065
     Dates: end: 201607
  4. EXJADE [Suspect]
     Active Substance: DEFERASIROX
     Dosage: 1500 MG, QD
     Route: 048
     Dates: end: 201608

REACTIONS (6)
  - Dyspnoea [Recovered/Resolved]
  - Cardiomegaly [Unknown]
  - Diarrhoea [Recovered/Resolved]
  - Infection [Unknown]
  - Serum ferritin increased [Unknown]
  - Pulmonary oedema [Unknown]

NARRATIVE: CASE EVENT DATE: 201607
